FAERS Safety Report 6099043-4 (Version None)
Quarter: 2009Q1

REPORT INFORMATION
  Report Type: 
  Country: None (occurrence: None)
  Receive Date: 20090302
  Receipt Date: 20090220
  Transmission Date: 20090719
  Serious: Yes (Hospitalization)
  Sender: FDA-Public Use
  Company Number: US-BRISTOL-MYERS SQUIBB COMPANY-14499859

PATIENT
  Age: 69 Year
  Sex: Male

DRUGS (25)
  1. CETUXIMAB [Suspect]
     Indication: PROSTATE CANCER
     Dosage: THERAPY DATE: 14OCT08-24DEC08,PATIENT WITHDRAWN FROM THE STUDY ON 06JAN09
     Route: 042
     Dates: start: 20081224, end: 20081224
  2. MITOXANTRONE [Suspect]
     Indication: PROSTATE CANCER
     Dosage: THERAPY DATE: 14OCT08-24DEC08,PATIENT WITHDRAWN FROM THE STUDY ON 06JAN09
     Route: 042
     Dates: start: 20081224, end: 20081224
  3. ALLEGRA [Concomitant]
     Indication: SEASONAL ALLERGY
     Route: 048
     Dates: start: 20000101
  4. LIPITOR [Concomitant]
     Indication: HYPERCHOLESTEROLAEMIA
     Route: 048
     Dates: start: 20010101
  5. MELOXICAM [Concomitant]
     Indication: ARTHRITIS
     Route: 048
     Dates: start: 20030101
  6. ALLOPURINOL [Concomitant]
     Indication: GOUT
     Route: 048
     Dates: start: 19950101
  7. PENICILLIN [Concomitant]
     Indication: OSTEONECROSIS
     Route: 048
     Dates: start: 20060101
  8. EFFEXOR [Concomitant]
     Indication: DEPRESSION
     Dosage: ON 19NOV08-75MG 1 IN 1 HS
     Route: 048
     Dates: start: 20060101
  9. REGLAN [Concomitant]
     Indication: NAUSEA
     Route: 048
     Dates: start: 20060101
  10. LUPRON [Concomitant]
     Indication: PROSTATE CANCER
     Route: 030
     Dates: start: 20050603
  11. ZOFRAN [Concomitant]
     Indication: PROPHYLAXIS OF NAUSEA AND VOMITING
     Route: 048
     Dates: start: 20060101
  12. RITALIN [Concomitant]
     Indication: FATIGUE
     Route: 048
     Dates: start: 20070101
  13. SINGULAIR [Concomitant]
     Indication: SEASONAL ALLERGY
     Route: 048
     Dates: start: 20060101
  14. METHADONE HCL [Concomitant]
     Indication: PAIN
     Dosage: ON 31DEC08-10MG BID
     Route: 048
     Dates: start: 20080801
  15. DILAUDID [Concomitant]
     Indication: PAIN
     Route: 048
     Dates: start: 20080810
  16. CALCIUM + VITAMIN D [Concomitant]
     Indication: VITAMIN SUPPLEMENTATION
     Route: 048
     Dates: start: 20070101
  17. VITAMIN E [Concomitant]
     Indication: VITAMIN SUPPLEMENTATION
     Route: 048
     Dates: start: 20070101
  18. RED BLOOD CELLS [Concomitant]
     Indication: ANAEMIA
     Dosage: 1 DF = 2 OTHER, 30DEC08-30DEC08,31DEC08-31DEC08
     Route: 042
     Dates: start: 20081106, end: 20081106
  19. FENTANYL TRANSDERMAL SYSTEM [Concomitant]
     Indication: PAIN
     Route: 062
     Dates: start: 20081224
  20. NEUPOGEN [Concomitant]
     Indication: NEUTROPENIA
     Route: 058
     Dates: start: 20081201, end: 20081201
  21. HYDROMORPHONE HCL [Concomitant]
     Indication: PAIN
     Dosage: ALSO 2MG, AS NECESSARY
     Route: 048
     Dates: start: 20081226
  22. PENICILLIN V POTASSIUM [Concomitant]
     Indication: ANTIBIOTIC PROPHYLAXIS
     Route: 048
     Dates: start: 20081230
  23. LASIX [Concomitant]
  24. POTASSIUM CHLORIDE [Concomitant]
  25. IRON SUPPLEMENT [Concomitant]
     Indication: VITAMIN SUPPLEMENTATION
     Route: 048
     Dates: start: 20070101

REACTIONS (2)
  - ANAEMIA [None]
  - CONFUSIONAL STATE [None]
